FAERS Safety Report 7198693-1 (Version None)
Quarter: 2010Q4

REPORT INFORMATION
  Report Type: 
  Country: None (occurrence: None)
  Receive Date: 20101227
  Receipt Date: 20101217
  Transmission Date: 20110411
  Serious: Yes (Other)
  Sender: FDA-Public Use
  Company Number: FR-ELI_LILLY_AND_COMPANY-FR201012005580

PATIENT
  Age: 75 Year
  Sex: Male
  Weight: 50 kg

DRUGS (3)
  1. EFFIENT [Suspect]
     Dosage: 60 MG, UNKNOWN
     Route: 048
  2. EFFIENT [Suspect]
     Dosage: 10 MG, MAINTENANCE DOSE
     Route: 048
  3. PLAVIX [Concomitant]

REACTIONS (3)
  - MEDICATION ERROR [None]
  - OFF LABEL USE [None]
  - PERIPHERAL ISCHAEMIA [None]
